FAERS Safety Report 7641156-7 (Version None)
Quarter: 2011Q3

REPORT INFORMATION
  Report Type: 
  Country: None (occurrence: None)
  Receive Date: 20110728
  Receipt Date: 20110715
  Transmission Date: 20111222
  Serious: Yes (Other)
  Sender: FDA-Public Use
  Company Number: PHHY2011CA64485

PATIENT
  Sex: Male

DRUGS (1)
  1. ALISKIREN [Suspect]
     Dosage: UNK UKN, UNK

REACTIONS (3)
  - DRY THROAT [None]
  - PNEUMONIA [None]
  - COUGH [None]
